FAERS Safety Report 12856245 (Version 1)
Quarter: 2016Q4

REPORT INFORMATION
  Report Type: Spontaneous
  Country: AU (occurrence: AU)
  Receive Date: 20161018
  Receipt Date: 20161018
  Transmission Date: 20170207
  Serious: Yes (Other)
  Sender: FDA-Public Use
  Company Number: AU-SUN PHARMACEUTICAL INDUSTRIES LTD-2016RR-124787

PATIENT
  Age: 57 Year
  Sex: Female

DRUGS (4)
  1. CARBAMAZEPINE. [Suspect]
     Active Substance: CARBAMAZEPINE
     Indication: NEURALGIA
     Dosage: (AT NIGHT)
     Route: 065
  2. PREGABALIN. [Suspect]
     Active Substance: PREGABALIN
     Indication: TRIGEMINAL NEURALGIA
     Dosage: 75 MG, DAILY
     Route: 065
  3. VALPROIC ACID. [Suspect]
     Active Substance: VALPROIC ACID
     Dosage: 200 MG, BID
  4. VALPROIC ACID. [Suspect]
     Active Substance: VALPROIC ACID
     Indication: TRIGEMINAL NEURALGIA
     Dosage: 200 MG, DAILY
     Route: 065

REACTIONS (5)
  - Headache [Recovered/Resolved]
  - Cognitive disorder [Unknown]
  - Off label use [Unknown]
  - Visual field defect [Unknown]
  - Balance disorder [Unknown]
